FAERS Safety Report 6391438-4 (Version None)
Quarter: 2009Q4

REPORT INFORMATION
  Report Type: 
  Country: None (occurrence: None)
  Receive Date: 20091007
  Receipt Date: 20091005
  Transmission Date: 20100525
  Serious: Yes (Hospitalization, Other)
  Sender: FDA-Public Use
  Company Number: US-BRISTOL-MYERS SQUIBB COMPANY-14780480

PATIENT
  Age: 60 Year
  Sex: Male
  Weight: 66 kg

DRUGS (8)
  1. IXABEPILONE [Suspect]
     Indication: NON-SMALL CELL LUNG CANCER
     Dates: start: 20090901, end: 20090901
  2. CARBOPLATIN [Suspect]
     Indication: NON-SMALL CELL LUNG CANCER
     Dates: start: 20090901, end: 20090901
  3. AVASTIN [Suspect]
     Indication: NON-SMALL CELL LUNG CANCER
     Dates: start: 20090901, end: 20090901
  4. PANTOPRAZOLE SODIUM [Concomitant]
     Route: 048
     Dates: start: 20090827
  5. PRAVASTATIN [Concomitant]
     Dates: start: 20090827
  6. ACETYLSALICYLIC ACID [Concomitant]
     Dates: start: 20090827
  7. NITROGLYCERIN [Concomitant]
     Indication: CHEST PAIN
     Dates: start: 20090827
  8. METOPROLOL [Concomitant]
     Dosage: 1/2TABS
     Dates: start: 20090827, end: 20090911

REACTIONS (6)
  - DEHYDRATION [None]
  - HYPOTENSION [None]
  - HYPOVOLAEMIA [None]
  - NAUSEA [None]
  - NEUTROPENIA [None]
  - VOMITING [None]
